FAERS Safety Report 12030675 (Version 1)
Quarter: 2016Q1

REPORT INFORMATION
  Report Type: Report from Study
  Country: US (occurrence: US)
  Receive Date: 20160207
  Receipt Date: 20160207
  Transmission Date: 20160526
  Serious: No
  Sender: FDA-Public Use
  Company Number: US-ABBVIE-15K-163-1506525-00

PATIENT
  Sex: Female

DRUGS (1)
  1. HUMIRA [Suspect]
     Active Substance: ADALIMUMAB
     Indication: ANKYLOSING SPONDYLITIS
     Route: 058
     Dates: start: 201511

REACTIONS (24)
  - Musculoskeletal stiffness [Unknown]
  - Rash pustular [Unknown]
  - Tenderness [Unknown]
  - Musculoskeletal stiffness [Unknown]
  - Arthralgia [Unknown]
  - Nasopharyngitis [Unknown]
  - Neck pain [Unknown]
  - Peripheral swelling [Recovered/Resolved]
  - Headache [Unknown]
  - Urticaria [Unknown]
  - Pain [Unknown]
  - Discomfort [Unknown]
  - Activities of daily living impaired [Unknown]
  - Localised oedema [Unknown]
  - Back pain [Unknown]
  - Drug effect incomplete [Unknown]
  - Pain in extremity [Recovered/Resolved]
  - Swelling [Unknown]
  - Discomfort [Unknown]
  - Fatigue [Unknown]
  - Dysstasia [Unknown]
  - Inappropriate schedule of drug administration [Unknown]
  - Joint range of motion decreased [Unknown]
  - Rash pruritic [Unknown]

NARRATIVE: CASE EVENT DATE: 2015
